FAERS Safety Report 8032803-9 (Version None)
Quarter: 2011Q4

REPORT INFORMATION
  Report Type: 
  Country: None (occurrence: None)
  Receive Date: 20111223
  Receipt Date: 20111214
  Transmission Date: 20120403
  Serious: Yes (Hospitalization)
  Sender: FDA-Public Use
  Company Number: 2011SP058778

PATIENT

DRUGS (2)
  1. IMPLANON [Suspect]
     Indication: MATERNAL EXPOSURE DURING DELIVERY
     Dosage: TRPL
     Route: 064
  2. IMPLANON [Suspect]

REACTIONS (4)
  - CAESAREAN SECTION [None]
  - FOETAL EXPOSURE DURING PREGNANCY [None]
  - PREGNANCY WITH IMPLANT CONTRACEPTIVE [None]
  - PLACENTAL INSUFFICIENCY [None]
